FAERS Safety Report 21023533 (Version 1)
Quarter: 2022Q2

REPORT INFORMATION
  Report Type: Spontaneous
  Country: BR (occurrence: BR)
  Receive Date: 20220629
  Receipt Date: 20220629
  Transmission Date: 20220720
  Serious: Yes (Disabling)
  Sender: FDA-Public Use
  Company Number: BR-SA-SAC20220124001190

PATIENT
  Age: 36 Year
  Sex: Female
  Weight: 58 kg

DRUGS (4)
  1. ENOXAPARIN SODIUM [Suspect]
     Active Substance: ENOXAPARIN SODIUM
     Indication: Hypercoagulation
     Route: 058
     Dates: start: 202106
  2. PURAN [Concomitant]
     Active Substance: LEVOTHYROXINE SODIUM
     Indication: Hypothyroidism
     Route: 048
     Dates: start: 20220106
  3. REGENESIS [ALENDRONATE SODIUM] [Concomitant]
     Route: 048
  4. BETRAT [Concomitant]
     Dosage: START DATE: AUG-2021
     Route: 048
     Dates: start: 202108

REACTIONS (6)
  - Infertility [Unknown]
  - Polycystic ovaries [Unknown]
  - Menstrual disorder [Unknown]
  - Maternal exposure during pregnancy [Unknown]
  - Product use in unapproved indication [Unknown]
  - Product packaging issue [Unknown]

NARRATIVE: CASE EVENT DATE: 20210601
